FAERS Safety Report 9605275 (Version 1)
Quarter: 2013Q4

REPORT INFORMATION
  Report Type: Spontaneous
  Country: DE (occurrence: DE)
  Receive Date: 20131008
  Receipt Date: 20131008
  Transmission Date: 20140711
  Serious: Yes (Congenital Anomaly)
  Sender: FDA-Public Use
  Company Number: DE-GLAXOSMITHKLINE-D0081278A

PATIENT
  Sex: Female
  Weight: 2.4 kg

DRUGS (3)
  1. LAMICTAL [Suspect]
     Indication: EPILEPSY
     Dosage: 50MG TWICE PER DAY
     Route: 064
  2. ERYHEXAL [Concomitant]
     Indication: GENITOURINARY CHLAMYDIA INFECTION
     Dosage: 500MG FOUR TIMES PER DAY
     Route: 064
     Dates: start: 20080329, end: 20080408
  3. FOLSAN [Concomitant]
     Indication: PROPHYLAXIS OF NEURAL TUBE DEFECT
     Dosage: 5MG PER DAY
     Route: 064

REACTIONS (3)
  - Polydactyly [Recovered/Resolved with Sequelae]
  - Premature baby [Unknown]
  - Foetal exposure during pregnancy [Unknown]
